FAERS Safety Report 6563728-3 (Version None)
Quarter: 2010Q1

REPORT INFORMATION
  Report Type: 
  Country: None (occurrence: None)
  Receive Date: 20100130
  Receipt Date: 20091221
  Transmission Date: 20100710
  Serious: No
  Sender: FDA-Public Use
  Company Number: US-ABBOTT-09P-163-0616418-00

PATIENT
  Sex: Female
  Weight: 56.75 kg

DRUGS (3)
  1. HUMIRA [Suspect]
     Indication: CROHN'S DISEASE
     Dates: start: 20080101, end: 20090101
  2. HUMIRA [Suspect]
     Dates: start: 20090101, end: 20090101
  3. HUMIRA [Suspect]
     Dates: start: 20091201

REACTIONS (3)
  - ARTHRITIS INFECTIVE [None]
  - DYSPHONIA [None]
  - NASOPHARYNGITIS [None]
